FAERS Safety Report 7105538-4 (Version None)
Quarter: 2010Q4

REPORT INFORMATION
  Report Type: 
  Country: None (occurrence: None)
  Receive Date: 20101116
  Receipt Date: 20101109
  Transmission Date: 20110411
  Serious: Yes (Other)
  Sender: FDA-Public Use
  Company Number: GB-ROCHE-733542

PATIENT
  Sex: Female

DRUGS (3)
  1. HERCEPTIN [Suspect]
     Route: 042
     Dates: start: 20100101
  2. BENDROFLUMETHIAZIDE [Concomitant]
     Indication: HYPERTENSION
  3. ARIMIDEX [Concomitant]
     Indication: BREAST CANCER

REACTIONS (1)
  - DYSHIDROSIS [None]
